FAERS Safety Report 9579849 (Version 4)
Quarter: 2014Q1

REPORT INFORMATION
  Report Type: Spontaneous
  Country: US (occurrence: US)
  Receive Date: 20131002
  Receipt Date: 20140311
  Transmission Date: 20141002
  Serious: Yes (Other)
  Sender: FDA-Public Use
  Company Number: US-ASTRAZENECA-2013SE71783

PATIENT
  Age: 70 Year
  Sex: Female
  Weight: 49.4 kg

DRUGS (14)
  1. FASLODEX [Suspect]
     Indication: BONE CANCER
     Route: 030
     Dates: start: 201307
  2. FASLODEX [Suspect]
     Indication: BREAST CANCER STAGE IV
     Route: 030
     Dates: start: 201307
  3. FASLODEX [Suspect]
     Indication: BONE CANCER
     Dosage: Q2WK
     Route: 030
  4. FASLODEX [Suspect]
     Indication: BREAST CANCER STAGE IV
     Dosage: Q2WK
     Route: 030
  5. FASLODEX [Suspect]
     Indication: BONE CANCER
     Route: 030
     Dates: start: 201308
  6. FASLODEX [Suspect]
     Indication: BREAST CANCER STAGE IV
     Route: 030
     Dates: start: 201308
  7. HCTZ [Suspect]
     Indication: DIURETIC THERAPY
     Route: 065
  8. LOSARTAN [Concomitant]
     Indication: BLOOD PRESSURE ABNORMAL
  9. ZOLOFT [Concomitant]
  10. VIT D [Concomitant]
  11. BLOOD PRESSURE PILL [Concomitant]
     Indication: BLOOD PRESSURE ABNORMAL
  12. WATER PILL [Concomitant]
  13. VITAMINS [Concomitant]
  14. JENEVA [Concomitant]
     Indication: BONE DISORDER

REACTIONS (15)
  - Metastases to spine [Unknown]
  - Breast cancer metastatic [Unknown]
  - Gait disturbance [Unknown]
  - Pain [Unknown]
  - Pain in extremity [Unknown]
  - Weight increased [Unknown]
  - Tooth loss [Unknown]
  - Back pain [Not Recovered/Not Resolved]
  - Arthralgia [Not Recovered/Not Resolved]
  - Bone pain [Not Recovered/Not Resolved]
  - Blood pressure increased [Unknown]
  - Abdominal distension [Unknown]
  - Bladder disorder [Unknown]
  - Feeling abnormal [Unknown]
  - Adverse drug reaction [Unknown]
